FAERS Safety Report 9908039 (Version 2)
Quarter: 2014Q2

REPORT INFORMATION
  Report Type: Spontaneous
  Country: US (occurrence: None)
  Receive Date: 20140211
  Receipt Date: 20140603
  Transmission Date: 20141212
  Serious: No
  Sender: FDA-Public Use
  Company Number: 2014-US-001036

PATIENT
  Age: 32 Year
  Sex: Male

DRUGS (1)
  1. XYREM (SODIUM OXYBATE) ORAL SOLUTION, 500 MG/ML [Suspect]
     Indication: NARCOLEPSY
     Route: 048
     Dates: start: 201210

REACTIONS (6)
  - Parasomnia [None]
  - Disorientation [None]
  - Convulsion [None]
  - Confusional state [None]
  - Fatigue [None]
  - Memory impairment [None]
